FAERS Safety Report 6991475-2 (Version None)
Quarter: 2010Q3

REPORT INFORMATION
  Report Type: 
  Country: None (occurrence: None)
  Receive Date: 20100916
  Receipt Date: 20090826
  Transmission Date: 20110219
  Serious: No
  Sender: FDA-Public Use
  Company Number: US-WYE-H10744109

PATIENT
  Sex: Female

DRUGS (8)
  1. PRISTIQ [Suspect]
     Indication: DEPRESSION
     Route: 048
     Dates: start: 20090817
  2. CYMBALTA [Concomitant]
  3. GABAPENTIN [Concomitant]
  4. AMBIEN [Concomitant]
  5. AMITRIPTYLINE HCL [Concomitant]
  6. PLAQUENIL [Concomitant]
  7. METHOTREXATE [Concomitant]
  8. ACIPHEX [Concomitant]

REACTIONS (1)
  - PANIC ATTACK [None]
